FAERS Safety Report 4572225-6 (Version None)
Quarter: 2005Q1

REPORT INFORMATION
  Report Type: 
  Country: None (occurrence: None)
  Receive Date: 20050203
  Receipt Date: 20050121
  Transmission Date: 20050727
  Serious: Yes (Hospitalization, Other)
  Sender: FDA-Public Use
  Company Number: SEWYE216119NOV04

PATIENT
  Age: 17 Year
  Sex: Female

DRUGS (1)
  1. LOETTE-28 (LEVONORGESTREL/ETHINYL ESTRADIOL/INERT, TABLET, 0) [Suspect]
     Indication: CONTRACEPTION
     Dosage: 1 DOSAGE FORM 1X PER 1 DAY
     Dates: start: 20040801

REACTIONS (4)
  - ALANINE AMINOTRANSFERASE INCREASED [None]
  - JAUNDICE CHOLESTATIC [None]
  - NAUSEA [None]
  - PRURITUS [None]
